FAERS Safety Report 8395849-7 (Version None)
Quarter: 2012Q2

REPORT INFORMATION
  Report Type: 
  Country: None (occurrence: None)
  Receive Date: 20120530
  Receipt Date: 20120523
  Transmission Date: 20120825
  Serious: Yes (Other)
  Sender: FDA-Public Use
  Company Number: US-AMGEN-KDL224823

PATIENT
  Age: 54 Year
  Sex: Female

DRUGS (5)
  1. PROCRIT [Suspect]
     Indication: ANAEMIA
     Dosage: 40000 IU, 3 TIMES/WK
     Route: 058
     Dates: start: 20060101, end: 20060101
  2. CIMETIDINE [Concomitant]
  3. METFORMIN HCL [Concomitant]
     Indication: DIABETES MELLITUS
  4. PROCRIT [Suspect]
     Indication: ADIPOSIS DOLOROSA
     Dosage: 8000 IU, QWK
     Route: 058
     Dates: start: 20111201, end: 20120201
  5. RIBAVIRIN [Concomitant]

REACTIONS (8)
  - DEPRESSED MOOD [None]
  - DECREASED APPETITE [None]
  - SENSATION OF PRESSURE [None]
  - ABNORMAL LOSS OF WEIGHT [None]
  - ADIPOSIS DOLOROSA [None]
  - WEIGHT INCREASED [None]
  - DIABETES MELLITUS [None]
  - MALAISE [None]
